FAERS Safety Report 6084646-3 (Version None)
Quarter: 2009Q1

REPORT INFORMATION
  Report Type: 
  Country: None (occurrence: None)
  Receive Date: 20090211
  Receipt Date: 20081112
  Transmission Date: 20090719
  Serious: Yes (Other)
  Sender: FDA-Public Use
  Company Number: US-WYE-H06818608

PATIENT
  Sex: Female

DRUGS (2)
  1. EFFEXOR [Suspect]
  2. TREXIMET [Suspect]
     Indication: MIGRAINE
     Dosage: ORAL
     Route: 048

REACTIONS (1)
  - SEROTONIN SYNDROME [None]
